FAERS Safety Report 21135885 (Version 1)
Quarter: 2022Q3

REPORT INFORMATION
  Report Type: Report from Study
  Country: GB (occurrence: GB)
  Receive Date: 20220727
  Receipt Date: 20220727
  Transmission Date: 20221026
  Serious: Yes (Hospitalization)
  Sender: FDA-Public Use
  Company Number: GB-NOVARTISPH-NVSC2022GB117742

PATIENT
  Sex: Female

DRUGS (1)
  1. OMNITROPE [Suspect]
     Active Substance: SOMATROPIN
     Indication: Turner^s syndrome
     Dosage: 0.7 MG, QD (AS DIRECTED)
     Route: 065
     Dates: start: 20220421

REACTIONS (7)
  - Vomiting [Unknown]
  - Dehydration [Unknown]
  - Fatigue [Unknown]
  - Tremor [Unknown]
  - Feeling abnormal [Unknown]
  - Product supply issue [Unknown]
  - Product storage error [Unknown]
